FAERS Safety Report 7011842-0 (Version None)
Quarter: 2010Q3

REPORT INFORMATION
  Report Type: 
  Country: None (occurrence: None)
  Receive Date: 20100923
  Receipt Date: 20090820
  Transmission Date: 20110219
  Serious: No
  Sender: FDA-Public Use
  Company Number: US-WYE-H10681809

PATIENT
  Sex: Female
  Weight: 63.56 kg

DRUGS (2)
  1. PREMARIN [Suspect]
     Indication: OESTROGEN REPLACEMENT THERAPY
     Route: 048
     Dates: start: 20090601, end: 20090701
  2. ADVAIR DISKUS 100/50 [Concomitant]

REACTIONS (2)
  - NIPPLE DISORDER [None]
  - NIPPLE SWELLING [None]
